FAERS Safety Report 11214913 (Version 1)
Quarter: 2015Q2

REPORT INFORMATION
  Report Type: Spontaneous
  Country: US (occurrence: US)
  Receive Date: 20150624
  Receipt Date: 20150624
  Transmission Date: 20150821
  Serious: Yes (Other)
  Sender: FDA-Public Use
  Company Number: US-BAYER-2015-347095

PATIENT
  Age: 33 Year
  Sex: Female

DRUGS (1)
  1. MIRENA [Suspect]
     Active Substance: LEVONORGESTREL
     Indication: CONTRACEPTION
     Dosage: 24 MCG/24HR, CONT
     Route: 015
     Dates: start: 201303

REACTIONS (3)
  - Genital haemorrhage [Unknown]
  - Abdominal pain upper [Unknown]
  - Dysmenorrhoea [Unknown]

NARRATIVE: CASE EVENT DATE: 201303
